FAERS Safety Report 4738457-9 (Version None)
Quarter: 2005Q3

REPORT INFORMATION
  Report Type: 
  Country: None (occurrence: None)
  Receive Date: 20050728
  Receipt Date: 20050426
  Transmission Date: 20060218
  Serious: No
  Sender: FDA-Public Use
  Company Number: 200513522US

PATIENT
  Sex: Female

DRUGS (2)
  1. KETEK [Suspect]
     Indication: PHARYNGOLARYNGEAL PAIN
  2. KETEK [Suspect]
     Indication: PHARYNGOLARYNGEAL PAIN

REACTIONS (2)
  - DRUG INEFFECTIVE [None]
  - FAECES DISCOLOURED [None]
